FAERS Safety Report 4346787-8 (Version None)
Quarter: 2004Q1

REPORT INFORMATION
  Report Type: 
  Country: None (occurrence: None)
  Receive Date: 20040329
  Receipt Date: 20040123
  Transmission Date: 20041129
  Serious: No
  Sender: FDA-Public Use
  Company Number: USA040157459

PATIENT
  Age: 14 Year
  Sex: Male

DRUGS (1)
  1. STRATTERA [Suspect]
     Dosage: 40 MG/IN THE EVENING
     Dates: start: 20030101

REACTIONS (3)
  - ABNORMAL BEHAVIOUR [None]
  - SINUSITIS [None]
  - SOMNOLENCE [None]
